FAERS Safety Report 15470975 (Version 1)
Quarter: 2018Q4

REPORT INFORMATION
  Report Type: Spontaneous
  Country: US (occurrence: US)
  Receive Date: 20181006
  Receipt Date: 20181006
  Transmission Date: 20190205
  Serious: Yes (Hospitalization)
  Sender: FDA-Public Use
  Company Number: US-JNJFOC-20180928018

PATIENT
  Age: 38 Year
  Sex: Male

DRUGS (3)
  1. INVEGA SUSTENNA [Suspect]
     Active Substance: PALIPERIDONE PALMITATE
     Indication: BIPOLAR I DISORDER
     Route: 030
  2. DEPAKOTE [Concomitant]
     Active Substance: DIVALPROEX SODIUM
     Indication: PRODUCT USED FOR UNKNOWN INDICATION
     Route: 065
  3. INVEGA [Suspect]
     Active Substance: PALIPERIDONE
     Indication: BIPOLAR I DISORDER
     Route: 048

REACTIONS (1)
  - Psychotic symptom [Not Recovered/Not Resolved]

NARRATIVE: CASE EVENT DATE: 20180917
